FAERS Safety Report 4377146-X (Version None)
Quarter: 2004Q2

REPORT INFORMATION
  Report Type: 
  Country: None (occurrence: None)
  Receive Date: 20040608
  Receipt Date: 20040527
  Transmission Date: 20050107
  Serious: Yes (Life-Threatening, Hospitalization)
  Sender: FDA-Public Use
  Company Number: 2004-BP-02988BP

PATIENT
  Age: 66 Year
  Sex: Male

DRUGS (9)
  1. MICARDIS [Suspect]
     Indication: CEREBROVASCULAR ACCIDENT PROPHYLAXIS
     Route: 048
     Dates: start: 20021113, end: 20040409
  2. MICARDIS [Suspect]
     Indication: PROPHYLAXIS
     Route: 048
     Dates: start: 20021113, end: 20040409
  3. RAMIPRIL [Suspect]
     Indication: CEREBROVASCULAR ACCIDENT PROPHYLAXIS
     Route: 048
     Dates: start: 20021113, end: 20040409
  4. RAMIPRIL [Suspect]
     Indication: PROPHYLAXIS
     Route: 048
     Dates: start: 20021113, end: 20040409
  5. METFORMIN HYDROCHLORIDE [Suspect]
  6. AMLODIPINE [Concomitant]
  7. ATENOLOL [Concomitant]
  8. TRAMADOL HCL [Concomitant]
  9. FUROSEMIDE [Concomitant]

REACTIONS (4)
  - BLOOD POTASSIUM INCREASED [None]
  - DYSPNOEA [None]
  - PCO2 DECREASED [None]
  - RENAL TUBULAR ACIDOSIS [None]
